FAERS Safety Report 6604433-4 (Version None)
Quarter: 2010Q1

REPORT INFORMATION
  Report Type: 
  Country: None (occurrence: None)
  Receive Date: 20100226
  Receipt Date: 20091007
  Transmission Date: 20100710
  Serious: No
  Sender: FDA-Public Use
  Company Number: A0810764A

PATIENT
  Age: 49 Year
  Sex: Female

DRUGS (22)
  1. LAMOTRIGINE [Suspect]
     Dosage: 50MG TWICE PER DAY
     Route: 048
     Dates: start: 20090801
  2. KEPPRA [Concomitant]
  3. CLARITIN [Concomitant]
  4. PRILOSEC [Concomitant]
  5. ZOLOFT [Concomitant]
  6. GLUCOPHAGE [Concomitant]
  7. LASIX [Concomitant]
  8. ISORDIL [Concomitant]
  9. LOPID [Concomitant]
  10. XANAX [Concomitant]
  11. TENORMIN [Concomitant]
  12. ASPIRIN [Concomitant]
  13. LISINOPRIL [Concomitant]
  14. FLEXERIL [Concomitant]
  15. DESERIL [Concomitant]
  16. LYRICA [Concomitant]
  17. VITAMIN [Concomitant]
  18. ALBUTEROL SULATE [Concomitant]
  19. NEBULIZER [Concomitant]
  20. VANCOMYCIN [Concomitant]
  21. MORPHINE [Concomitant]
  22. NORCO [Concomitant]

REACTIONS (6)
  - ABDOMINAL PAIN [None]
  - BONE PAIN [None]
  - DYSPHONIA [None]
  - DYSPNOEA [None]
  - HEADACHE [None]
  - PRODUCTIVE COUGH [None]
